FAERS Safety Report 23353518 (Version 1)
Quarter: 2023Q4

REPORT INFORMATION
  Report Type: Report from Study
  Country: US (occurrence: US)
  Receive Date: 20231231
  Receipt Date: 20231231
  Transmission Date: 20240110
  Serious: Yes (Hospitalization, Other)
  Sender: FDA-Public Use
  Company Number: US-ABBVIE-5565304

PATIENT
  Sex: Male

DRUGS (2)
  1. HUMIRA [Suspect]
     Active Substance: ADALIMUMAB
     Indication: Colitis ulcerative
     Route: 058
     Dates: start: 20230920
  2. HUMIRA [Suspect]
     Active Substance: ADALIMUMAB
     Route: 058
     Dates: start: 20230306, end: 20230726

REACTIONS (13)
  - Abdominal discomfort [Unknown]
  - Post procedural bile leak [Unknown]
  - Gallbladder disorder [Unknown]
  - Gallbladder disorder [Unknown]
  - Abdominal pain [Recovered/Resolved]
  - Pyrexia [Unknown]
  - Post procedural infection [Unknown]
  - Abdominal pain [Unknown]
  - Cholecystitis infective [Unknown]
  - Cholelithiasis [Unknown]
  - Haematochezia [Unknown]
  - Product administration error [Unknown]
  - Adverse drug reaction [Unknown]

NARRATIVE: CASE EVENT DATE: 20230101
